FAERS Safety Report 8076847-X (Version None)
Quarter: 2012Q1

REPORT INFORMATION
  Report Type: 
  Country: None (occurrence: None)
  Receive Date: 20120127
  Receipt Date: 20120116
  Transmission Date: 20120608
  Serious: Yes (Other)
  Sender: FDA-Public Use
  Company Number: PHFR2011GB007464

PATIENT
  Sex: Female
  Weight: 68.9 kg

DRUGS (8)
  1. AMISULPRIDE [Concomitant]
     Dosage: 200 MG, DAILY
     Route: 048
  2. FLUTICASONE PROPIONATE [Concomitant]
  3. CITALOPRAM [Concomitant]
     Indication: DEPRESSION
     Dosage: 40 MG, DAILY
     Route: 048
  4. FOLIC ACID [Concomitant]
     Dosage: 5 MG, DAILY
  5. SALMETEROL [Concomitant]
  6. CLOZARIL [Suspect]
     Indication: SCHIZOPHRENIA
     Dosage: 100 MG IN THE MORNING AND 150 MG IN NIGHT
     Route: 048
     Dates: start: 20031103
  7. VALPROATE SODIUM [Concomitant]
     Indication: AFFECTIVE DISORDER
     Dosage: 1000 MG, DAILY
     Route: 048
  8. SIMVASTATIN [Concomitant]
     Dosage: 40 MG, DAILY
     Route: 048

REACTIONS (3)
  - MEAN CELL VOLUME INCREASED [None]
  - FULL BLOOD COUNT ABNORMAL [None]
  - MEAN CELL HAEMOGLOBIN DECREASED [None]
